FAERS Safety Report 4665373-3 (Version None)
Quarter: 2005Q2

REPORT INFORMATION
  Report Type: 
  Country: None (occurrence: None)
  Receive Date: 20050517
  Receipt Date: 20050310
  Transmission Date: 20051028
  Serious: No
  Sender: FDA-Public Use
  Company Number: S05-USA-01365-01

PATIENT
  Age: 68 Year
  Sex: Male

DRUGS (7)
  1. NAMENDA [Suspect]
     Indication: DEMENTIA ALZHEIMER'S TYPE
     Dosage: 15 MG QD PO
     Route: 048
     Dates: start: 20050308
  2. NAMENDA [Suspect]
     Indication: DEMENTIA ALZHEIMER'S TYPE
     Dosage: 5 MG QD PO
     Route: 048
     Dates: start: 20050222, end: 20050228
  3. NAMENDA [Suspect]
     Indication: DEMENTIA ALZHEIMER'S TYPE
     Dosage: 5 MG BID PO
     Route: 048
     Dates: start: 20050301, end: 20050307
  4. ARICEPT [Concomitant]
  5. ATENOLOL [Concomitant]
  6. DIOVAN [Concomitant]
  7. TERAZOSIN HCL [Concomitant]

REACTIONS (1)
  - BLOOD PRESSURE INCREASED [None]
